FAERS Safety Report 8866974 (Version 1)
Quarter: 2012Q4

REPORT INFORMATION
  Report Type: 
  Country: US (occurrence: US)
  Receive Date: 20121025
  Receipt Date: 20121025
  Transmission Date: 20130627
  Serious: No
  Sender: FDA-Public Use
  Company Number: US-AMGEN-USASP2012014156

PATIENT
  Sex: Female

DRUGS (7)
  1. ENBREL [Suspect]
     Indication: PRODUCT USED FOR UNKNOWN INDICATION
     Dosage: 25 mg, 2 times/wk
  2. LEVOTHYROXIN [Concomitant]
     Dosage: 75 mug, UNK
  3. MELOXICAM [Concomitant]
     Dosage: 7.5 mg, UNK
  4. OMEPRAZOLE [Concomitant]
     Dosage: 20 mg, UNK
  5. CELEXA                             /00582602/ [Concomitant]
     Dosage: 10 mg, UNK
  6. CALCIUM [Concomitant]
  7. MULTI-VIT [Concomitant]

REACTIONS (1)
  - Sinusitis [Unknown]
